FAERS Safety Report 6271469-5 (Version None)
Quarter: 2009Q3

REPORT INFORMATION
  Report Type: 
  Country: None (occurrence: None)
  Receive Date: 20090717
  Receipt Date: 20090707
  Transmission Date: 20100115
  Serious: Yes (Other)
  Sender: FDA-Public Use
  Company Number: PHEH2008US09426

PATIENT
  Sex: Female

DRUGS (1)
  1. RECLAST [Suspect]
     Dosage: UNK, ONCE/ SINGLE, YEARLY
     Dates: start: 20080702, end: 20080702

REACTIONS (9)
  - CONDITION AGGRAVATED [None]
  - DENTAL CARIES [None]
  - GINGIVAL DISORDER [None]
  - INFLUENZA LIKE ILLNESS [None]
  - JAW DISORDER [None]
  - PAIN IN JAW [None]
  - TOOTH DISORDER [None]
  - TOOTH EXTRACTION [None]
  - TOOTHACHE [None]
